FAERS Safety Report 8799886 (Version 2)
Quarter: 2012Q4

REPORT INFORMATION
  Report Type: 
  Country: PT (occurrence: PT)
  Receive Date: 20120919
  Receipt Date: 20120926
  Transmission Date: 20130627
  Serious: Yes (Other)
  Sender: FDA-Public Use
  Company Number: PT-009507513-1209PRT005900

PATIENT
  Age: 35 Year
  Sex: Female

DRUGS (2)
  1. ZOELY [Suspect]
     Indication: CONTRACEPTION
     Dosage: 1 UNK, UNK
     Route: 048
     Dates: start: 201204, end: 201208
  2. CLORAZEPATE DIPOTASSIUM [Concomitant]

REACTIONS (2)
  - Blindness [Unknown]
  - Vision blurred [Recovered/Resolved]
